FAERS Safety Report 20125856 (Version 2)
Quarter: 2021Q4

REPORT INFORMATION
  Report Type: Report from Study
  Country: ES (occurrence: None)
  Receive Date: 20211129
  Receipt Date: 20211217
  Transmission Date: 20220303
  Serious: Yes (Other)
  Sender: FDA-Public Use
  Company Number: ES-ROCHE-2916406

PATIENT

DRUGS (7)
  1. TOCILIZUMAB [Suspect]
     Active Substance: TOCILIZUMAB
     Indication: Cytokine storm
     Dosage: FREQUENCY NOT REPORTED
     Route: 042
     Dates: start: 20200419
  2. TOCILIZUMAB [Suspect]
     Active Substance: TOCILIZUMAB
     Indication: COVID-19 pneumonia
  3. METHYLPREDNISOLONE [Concomitant]
     Active Substance: METHYLPREDNISOLONE
     Indication: COVID-19
     Dates: start: 20200417, end: 20200419
  4. CEFTRIAXONE [Concomitant]
     Active Substance: CEFTRIAXONE
     Indication: COVID-19
     Dates: start: 20200416, end: 20200423
  5. ENOXAPARIN SODIUM [Concomitant]
     Active Substance: ENOXAPARIN SODIUM
     Indication: Thrombosis prophylaxis
     Dates: start: 20200406
  6. MIDAZOLAM [Concomitant]
     Active Substance: MIDAZOLAM
     Indication: Endotracheal intubation
     Dates: start: 20200420, end: 20200424
  7. FENTANYL [Concomitant]
     Active Substance: FENTANYL
     Indication: Endotracheal intubation
     Dates: start: 20200420, end: 20200424

REACTIONS (1)
  - Acute respiratory distress syndrome [Recovered/Resolved]

NARRATIVE: CASE EVENT DATE: 20200420
